FAERS Safety Report 9210959 (Version 2)
Quarter: 2013Q3

REPORT INFORMATION
  Report Type: Spontaneous
  Country: PR (occurrence: PR)
  Receive Date: 20130404
  Receipt Date: 20130703
  Transmission Date: 20140515
  Serious: Yes (Hospitalization)
  Sender: FDA-Public Use
  Company Number: PR-ABBOTT-13P-131-1064141-00

PATIENT
  Age: 34 Year
  Sex: Female
  Weight: 58.57 kg

DRUGS (4)
  1. HUMIRA [Suspect]
     Indication: PSORIASIS
     Route: 058
     Dates: start: 20120123, end: 20120527
  2. HUMIRA [Suspect]
     Route: 058
     Dates: start: 201304
  3. CLOBETASOL PROPIONATE [Concomitant]
     Indication: PSORIASIS
     Dosage: AT BEDTIME
     Route: 061
  4. SOAPS [Concomitant]
     Indication: PSORIASIS
     Route: 061

REACTIONS (7)
  - Blood glucose increased [Recovered/Resolved]
  - Blood magnesium decreased [Recovered/Resolved]
  - Hepatic enzyme increased [Recovering/Resolving]
  - Hypertension [Recovered/Resolved]
  - Chest pain [Recovered/Resolved]
  - Psoriasis [Recovered/Resolved]
  - Psoriasis [Not Recovered/Not Resolved]
